FAERS Safety Report 9835685 (Version 1)
Quarter: 2014Q1

REPORT INFORMATION
  Report Type: Report from Study
  Country: IT (occurrence: IT)
  Receive Date: 20140122
  Receipt Date: 20140122
  Transmission Date: 20141002
  Serious: Yes (Death, Other)
  Sender: FDA-Public Use
  Company Number: IT-CELGENEUS-083-50794-14012245

PATIENT
  Sex: 0

DRUGS (2)
  1. VIDAZA [Suspect]
     Indication: MYELODYSPLASTIC SYNDROME
     Route: 058
  2. VALPROIC ACID [Suspect]
     Indication: MYELODYSPLASTIC SYNDROME
     Dosage: 600-1500
     Route: 048

REACTIONS (35)
  - Death [Fatal]
  - Blood bilirubin abnormal [Unknown]
  - Aspartate aminotransferase abnormal [Unknown]
  - Hepatic infection [Unknown]
  - Cardiovascular disorder [Unknown]
  - Creatinine renal clearance abnormal [Unknown]
  - Anaemia [Unknown]
  - Thrombocytopenia [Unknown]
  - Neutropenia [Unknown]
  - Haemorrhage [Unknown]
  - Hypersensitivity [Unknown]
  - Acute myeloid leukaemia [Unknown]
  - Somnolence [Unknown]
  - Neurotoxicity [Unknown]
  - Sensory disturbance [Unknown]
  - Nervous system disorder [Unknown]
  - Coagulopathy [Unknown]
  - Conjunctivitis [Unknown]
  - Neuralgia [Unknown]
  - Central nervous system infection [Unknown]
  - Colitis [Unknown]
  - Skin infection [Unknown]
  - Confusional state [Unknown]
  - Pyrexia [Unknown]
  - Fatigue [Unknown]
  - Infection [Unknown]
  - Device related infection [Unknown]
  - Rash [Unknown]
  - Diarrhoea [Unknown]
  - Stomatitis [Unknown]
  - Dyspnoea [Unknown]
  - Pneumonia [Unknown]
  - Urinary tract infection [Unknown]
  - Myelodysplastic syndrome [Unknown]
  - Treatment failure [Unknown]
